FAERS Safety Report 20148396 (Version 1)
Quarter: 2021Q4

REPORT INFORMATION
  Report Type: Spontaneous
  Country: US (occurrence: US)
  Receive Date: 20211204
  Receipt Date: 20211204
  Transmission Date: 20220303
  Serious: No
  Sender: FDA-Public Use
  Company Number: US-SA-SAC20211128000562

PATIENT
  Age: 39 Year
  Sex: Female

DRUGS (13)
  1. DUPIXENT [Suspect]
     Active Substance: DUPILUMAB
     Indication: Dermatitis atopic
     Dosage: 300 MG, QOW
     Route: 058
     Dates: start: 20210911
  2. BUPROPION [Concomitant]
     Active Substance: BUPROPION
  3. CALCIUM [Concomitant]
     Active Substance: CALCIUM
  4. CLOBETASOL [Concomitant]
     Active Substance: CLOBETASOL
  5. NASCOBAL [Concomitant]
     Active Substance: CYANOCOBALAMIN
  6. OLMESARTAN MEDOXOMIL [Concomitant]
     Active Substance: OLMESARTAN MEDOXOMIL
  7. OSELTAMIVIR [Concomitant]
     Active Substance: OSELTAMIVIR
  8. PHENTERMINE [Concomitant]
     Active Substance: PHENTERMINE
  9. URSODIOL [Concomitant]
     Active Substance: URSODIOL
  10. VITAMIN B12 [Concomitant]
     Active Substance: CYANOCOBALAMIN
  11. VITAMIN B12 [Concomitant]
     Active Substance: CYANOCOBALAMIN
  12. WELLBUTRIN [Concomitant]
     Active Substance: BUPROPION HYDROCHLORIDE
  13. HYDROCORTISONE;NEOMYCIN;POLYMYXIN B [Concomitant]

REACTIONS (1)
  - Dermatitis atopic [Not Recovered/Not Resolved]

NARRATIVE: CASE EVENT DATE: 20210101
